FAERS Safety Report 17662676 (Version 1)
Quarter: 2020Q2

REPORT INFORMATION
  Report Type: Spontaneous
  Country: US (occurrence: US)
  Receive Date: 20200413
  Receipt Date: 20200413
  Transmission Date: 20200713
  Serious: Yes (Other)
  Sender: FDA-Public Use
  Company Number: US-PERRIGO-20US005223

PATIENT
  Sex: Male

DRUGS (1)
  1. RANITIDINE HYDROCHLORIDE. [Suspect]
     Active Substance: RANITIDINE HYDROCHLORIDE
     Indication: PRODUCT USED FOR UNKNOWN INDICATION
     Dosage: 150 MG, QD
     Route: 048
     Dates: start: 20110511, end: 2014

REACTIONS (2)
  - Pelvic fracture [Recovered/Resolved]
  - Plasma cell myeloma [Not Recovered/Not Resolved]
